FAERS Safety Report 20228410 (Version 3)
Quarter: 2022Q3

REPORT INFORMATION
  Report Type: Spontaneous
  Country: DE (occurrence: DE)
  Receive Date: 20211224
  Receipt Date: 20220922
  Transmission Date: 20221027
  Serious: Yes (Hospitalization, Other)
  Sender: FDA-Public Use
  Company Number: DE-GILEAD-2021-0562789

PATIENT
  Age: 52 Year
  Sex: Male

DRUGS (1)
  1. YESCARTA [Suspect]
     Active Substance: AXICABTAGENE CILOLEUCEL
     Indication: Diffuse large B-cell lymphoma
     Dosage: UNK UNK, ONCE
     Route: 042
     Dates: start: 20210311, end: 20210311

REACTIONS (6)
  - Guillain-Barre syndrome [Not Recovered/Not Resolved]
  - Miller Fisher syndrome [Not Recovered/Not Resolved]
  - Gait disturbance [Not Recovered/Not Resolved]
  - Mobility decreased [Not Recovered/Not Resolved]
  - Diffuse large B-cell lymphoma [Not Recovered/Not Resolved]
  - Cytopenia [Unknown]

NARRATIVE: CASE EVENT DATE: 20211117
